FAERS Safety Report 14233020 (Version 1)
Quarter: 2020Q3

REPORT INFORMATION
  Report Type: Report from Study
  Country: GB (occurrence: GB)
  Receive Date: 20171129
  Receipt Date: 20171129
  Transmission Date: 20201104
  Serious: Yes (Other)
  Sender: FDA-Public Use
  Company Number: GB-ROCHE-2027922

PATIENT
  Age: 55 Year
  Sex: Male

DRUGS (4)
  1. PHOLCODINE [Concomitant]
     Active Substance: PHOLCODINE
     Indication: COUGH
     Route: 048
     Dates: start: 20171012, end: 20171101
  2. ALECTINIB. [Suspect]
     Active Substance: ALECTINIB
     Indication: NON-SMALL CELL LUNG CANCER
     Route: 048
     Dates: start: 20171102, end: 20171113
  3. ALECTINIB. [Suspect]
     Active Substance: ALECTINIB
     Dosage: THERAPY RESTARTED
     Route: 048
  4. ORAMORPH [Concomitant]
     Active Substance: MORPHINE SULFATE
     Indication: COUGH
     Route: 048
     Dates: start: 20171027, end: 20171101

REACTIONS (4)
  - Rash pruritic [Recovered/Resolved]
  - Miliaria [Recovered/Resolved]
  - Rash [Recovered/Resolved]
  - Rash erythematous [Recovered/Resolved]

NARRATIVE: CASE EVENT DATE: 20171111
